FAERS Safety Report 9675965 (Version 1)
Quarter: 2013Q4

REPORT INFORMATION
  Report Type: Spontaneous
  Country: GB (occurrence: GB)
  Receive Date: 20131107
  Receipt Date: 20131107
  Transmission Date: 20140711
  Serious: Yes (Other)
  Sender: FDA-Public Use
  Company Number: GB-B.I. PHARMACEUTICALS,INC./RIDGEFIELD-2013-BI-35527UK

PATIENT
  Age: 66 Year
  Sex: Female
  Weight: 111.8 kg

DRUGS (6)
  1. LINAGLIPTIN [Suspect]
     Indication: DIABETES MELLITUS
     Route: 048
     Dates: start: 20130910, end: 20130926
  2. ATORVASTATIN [Concomitant]
     Indication: HYPERCHOLESTEROLAEMIA
     Dosage: 20 MG
     Route: 048
     Dates: start: 2004
  3. LEVEMIR [Concomitant]
     Route: 058
     Dates: start: 2008
  4. METFORMIN [Concomitant]
     Dosage: 500 MG
     Route: 048
     Dates: start: 2008
  5. NOVORAPID [Concomitant]
     Route: 058
     Dates: start: 2008
  6. PROPRANOLOL [Concomitant]
     Indication: HYPERTENSION
     Dosage: 100 MG
     Route: 048
     Dates: start: 2013

REACTIONS (2)
  - Joint swelling [Not Recovered/Not Resolved]
  - Local swelling [Not Recovered/Not Resolved]
